FAERS Safety Report 14573095 (Version 1)
Quarter: 2018Q1

REPORT INFORMATION
  Report Type: Spontaneous
  Country: US (occurrence: US)
  Receive Date: 20180223
  Receipt Date: 20180223
  Transmission Date: 20180509
  Serious: Yes (Other)
  Sender: FDA-Public Use
  Company Number: None

PATIENT
  Sex: Male
  Weight: 142.65 kg

DRUGS (8)
  1. POTASSIUM [Concomitant]
     Active Substance: POTASSIUM
  2. SOTALOL. [Concomitant]
     Active Substance: SOTALOL
  3. PREDNISOLONE AC 1% [Suspect]
     Active Substance: PREDNISOLONE ACETATE
     Indication: RETINAL DETACHMENT
     Dosage: ?          QUANTITY:1 DROP(S);?
     Route: 047
     Dates: start: 20171228, end: 20180106
  4. FISH OIL [Concomitant]
     Active Substance: FISH OIL
  5. ASPIRIN. [Concomitant]
     Active Substance: ASPIRIN
  6. CAL/MAG [Concomitant]
  7. LASICS [Concomitant]
  8. MULTI-VITAMIN [Concomitant]
     Active Substance: .ALPHA.-TOCOPHEROL ACETATE, DL-\ASCORBIC ACID\CYANOCOBALAMIN\FLUORIDE ION\FOLIC ACID\NIACIN\PYRIDOXINE\RIBOFLAVIN\THIAMINE\VITAMIN A\VITAMIN D

REACTIONS (4)
  - Palpitations [None]
  - Dizziness [None]
  - Therapy change [None]
  - Tachycardia [None]

NARRATIVE: CASE EVENT DATE: 20171231
